APPROVED DRUG PRODUCT: ONDANSETRON HYDROCHLORIDE
Active Ingredient: ONDANSETRON HYDROCHLORIDE
Strength: EQ 4MG BASE/5ML
Dosage Form/Route: SOLUTION;ORAL
Application: A076960 | Product #001 | TE Code: AA
Applicant: HIKMA PHARMACEUTICALS USA INC
Approved: Dec 26, 2006 | RLD: No | RS: Yes | Type: RX